FAERS Safety Report 12564780 (Version 1)
Quarter: 2016Q3

REPORT INFORMATION
  Report Type: Spontaneous
  Country: US (occurrence: None)
  Receive Date: 20160715
  Receipt Date: 20160715
  Transmission Date: 20161109
  Serious: No
  Sender: FDA-Public Use
  Company Number: None

PATIENT
  Age: 58 Year
  Sex: Female
  Weight: 49.9 kg

DRUGS (7)
  1. PROLIA [Suspect]
     Active Substance: DENOSUMAB
     Indication: OSTEOPOROSIS
     Dates: start: 20160318
  2. WHOLE FOOD VITAMINS [Concomitant]
  3. VITAMIN D [Concomitant]
     Active Substance: CHOLECALCIFEROL
  4. Q-10 [Concomitant]
  5. MELATONIN [Concomitant]
     Active Substance: MELATONIN
  6. HAWTHORNE [Concomitant]
  7. OSTEO BI-FLEX [Suspect]
     Active Substance: CHONDROITIN SULFATE A\GLUCOSAMINE

REACTIONS (2)
  - Dyspepsia [None]
  - Hypophagia [None]

NARRATIVE: CASE EVENT DATE: 20160318
